FAERS Safety Report 17799567 (Version 1)
Quarter: 2020Q2

REPORT INFORMATION
  Report Type: Spontaneous
  Country: IT (occurrence: IT)
  Receive Date: 20200518
  Receipt Date: 20200518
  Transmission Date: 20200714
  Serious: Yes (Hospitalization)
  Sender: FDA-Public Use
  Company Number: IT-MYLANLABS-2020M1049042

PATIENT
  Age: 85 Year
  Sex: Female

DRUGS (5)
  1. MICONAZOLE. [Concomitant]
     Active Substance: MICONAZOLE
     Indication: CANDIDA INFECTION
     Dosage: PASTE
     Route: 061
  2. ZINC OXIDE. [Concomitant]
     Active Substance: ZINC OXIDE
     Indication: CANDIDA INFECTION
     Dosage: PASTE
     Route: 061
  3. FLUCONAZOLE. [Suspect]
     Active Substance: FLUCONAZOLE
     Indication: CANDIDA INFECTION
     Dosage: AS AN ACCIDENTAL OVERDOSE
     Route: 048
  4. FLUCONAZOLE. [Suspect]
     Active Substance: FLUCONAZOLE
     Dosage: 200 MILLIGRAM, QD
     Route: 048
  5. PREDNISONE. [Concomitant]
     Active Substance: PREDNISONE
     Indication: RESPIRATORY FAILURE
     Dosage: 5 MILLIGRAM, QD
     Route: 065

REACTIONS (2)
  - Jarisch-Herxheimer reaction [Recovered/Resolved]
  - Accidental overdose [Recovered/Resolved]
